FAERS Safety Report 20379572 (Version 1)
Quarter: 2022Q1

REPORT INFORMATION
  Report Type: Spontaneous
  Country: US (occurrence: US)
  Receive Date: 20220126
  Receipt Date: 20220126
  Transmission Date: 20220423
  Serious: No
  Sender: FDA-Public Use
  Company Number: US-BAYER-2022A005541

PATIENT
  Age: 50 Year
  Sex: Male

DRUGS (4)
  1. REGORAFENIB [Suspect]
     Active Substance: REGORAFENIB
     Indication: Colon cancer
     Dosage: 80 MG, UNK
     Dates: start: 202007
  2. REGORAFENIB [Suspect]
     Active Substance: REGORAFENIB
     Indication: Colon cancer
     Dosage: 120 MG, UNK
  3. REGORAFENIB [Suspect]
     Active Substance: REGORAFENIB
     Indication: Colon cancer
     Dosage: 160 MG, UNK
  4. REGORAFENIB [Suspect]
     Active Substance: REGORAFENIB
     Indication: Colon cancer
     Dosage: 120 MG, UNK

REACTIONS (3)
  - Diarrhoea [None]
  - Hepatic lesion [None]
  - Off label use [None]

NARRATIVE: CASE EVENT DATE: 20200701
